FAERS Safety Report 11722516 (Version 6)
Quarter: 2016Q2

REPORT INFORMATION
  Report Type: Spontaneous
  Country: DE (occurrence: DE)
  Receive Date: 20151111
  Receipt Date: 20160429
  Transmission Date: 20160815
  Serious: Yes (Other)
  Sender: FDA-Public Use
  Company Number: PHHY2015DE145730

PATIENT
  Age: 74 Year
  Sex: Female
  Weight: 75 kg

DRUGS (8)
  1. ZOMETA [Suspect]
     Active Substance: ZOLEDRONIC ACID
     Indication: PROPHYLAXIS
     Dosage: 4 MG, EVERY FOUR WEEKS
     Route: 042
     Dates: start: 2014, end: 20150609
  2. EXEMESTAN [Concomitant]
     Active Substance: EXEMESTANE
     Indication: BREAST CANCER
     Dosage: 25 MG, QD (DAILY)
     Route: 065
     Dates: start: 20150609
  3. FERINJECT [Concomitant]
     Active Substance: FERRIC CARBOXYMALTOSE
     Indication: BLOOD IRON DECREASED
     Dosage: 500 MG, UNK (SOLUTION IN 250 ML NACL)
     Route: 042
     Dates: start: 20151009
  4. FERINJECT [Concomitant]
     Active Substance: FERRIC CARBOXYMALTOSE
     Dosage: 500 MG, UNK (SOLUTION IN 250 ML NACL)
     Route: 042
     Dates: start: 20151103
  5. DENOSUMAB [Suspect]
     Active Substance: DENOSUMAB
     Indication: METASTASES TO BONE
     Route: 058
     Dates: start: 201506
  6. ANASTROZOLE. [Concomitant]
     Active Substance: ANASTROZOLE
     Indication: PRODUCT USED FOR UNKNOWN INDICATION
     Dosage: UNK
     Route: 065
     Dates: start: 20100501, end: 20150608
  7. ZOMETA [Suspect]
     Active Substance: ZOLEDRONIC ACID
     Indication: METASTASES TO BONE
     Dosage: 4 MG, EVERY 4 WEEK
     Route: 042
     Dates: start: 20101109, end: 2014
  8. ARIMIDEX [Concomitant]
     Active Substance: ANASTROZOLE
     Indication: BREAST CANCER
     Route: 065
     Dates: start: 200912

REACTIONS (10)
  - Haemoglobin decreased [Recovering/Resolving]
  - Stomatitis [Recovered/Resolved]
  - Breast cancer metastatic [Recovering/Resolving]
  - Malignant neoplasm progression [Recovering/Resolving]
  - Groin abscess [Recovered/Resolved]
  - Blood iron increased [Unknown]
  - Stomatitis [Recovered/Resolved]
  - Metastases to bone [Recovering/Resolving]
  - Staphylococcal infection [Recovered/Resolved]
  - Drug ineffective [Unknown]

NARRATIVE: CASE EVENT DATE: 20140604
